FAERS Safety Report 9692873 (Version 1)
Quarter: 2013Q4

REPORT INFORMATION
  Report Type: Spontaneous
  Country: US (occurrence: None)
  Receive Date: 20131115
  Receipt Date: 20131115
  Transmission Date: 20140711
  Serious: Yes (Other)
  Sender: FDA-Public Use
  Company Number: None

PATIENT
  Age: 53 Year
  Sex: Female

DRUGS (20)
  1. CRESTOR [Suspect]
     Indication: BLOOD CHOLESTEROL INCREASED
     Route: 048
  2. XANAX [Concomitant]
  3. LAMICTAL [Concomitant]
  4. EFFEXOR [Concomitant]
  5. KEPPRA [Concomitant]
  6. SYNTHROID [Concomitant]
  7. VITAMIN D [Concomitant]
  8. COGENTIN [Concomitant]
  9. TENORMIN [Concomitant]
  10. LASIX [Concomitant]
  11. MEGA RED [Concomitant]
  12. ASA [Concomitant]
  13. NUVIGIL [Concomitant]
  14. NORVASC [Concomitant]
  15. LISINOPRIL [Concomitant]
  16. NITROSTAT [Concomitant]
  17. MOVE FREE [Concomitant]
  18. KLC [Concomitant]
  19. TERAZOSIN [Concomitant]
  20. SONATA [Concomitant]

REACTIONS (2)
  - Myalgia [None]
  - Amnesia [None]
